FAERS Safety Report 8566067-4 (Version None)
Quarter: 2012Q3

REPORT INFORMATION
  Report Type: 
  Country: None (occurrence: None)
  Receive Date: 20120803
  Receipt Date: 20110831
  Transmission Date: 20120928
  Serious: No
  Sender: FDA-Public Use
  Company Number: US-ABBOTT-11P-163-0851672-00

PATIENT
  Sex: Female

DRUGS (2)
  1. NIASPAN [Suspect]
     Indication: HYPERLIPIDAEMIA
     Dates: start: 20110101, end: 20110601
  2. NIASPAN [Suspect]
     Dosage: 1 IN MORNING, 1 IN EVENING, 2000 MG/DAY
     Dates: start: 20110601

REACTIONS (4)
  - FLUSHING [None]
  - DIARRHOEA [None]
  - ANAL PRURITUS [None]
  - VULVOVAGINAL PRURITUS [None]
